FAERS Safety Report 8070401-1 (Version None)
Quarter: 2012Q1

REPORT INFORMATION
  Report Type: 
  Country: None (occurrence: None)
  Receive Date: 20120117
  Receipt Date: 20120102
  Transmission Date: 20120608
  Serious: Yes (Death, Hospitalization)
  Sender: FDA-Public Use
  Company Number: AUR-APL-2012-00293

PATIENT
  Age: 39 Year
  Sex: Male

DRUGS (2)
  1. TRANYLCYPROMINE SULFATE [Suspect]
     Indication: PRODUCT USED FOR UNKNOWN INDICATION
     Dosage: (10 MG)
     Dates: end: 20100101
  2. METFORMIN HCL [Suspect]
     Indication: PRODUCT USED FOR UNKNOWN INDICATION
     Dosage: (1000 MG)
     Dates: end: 20100101

REACTIONS (10)
  - PNEUMONIA [None]
  - ACUTE RESPIRATORY DISTRESS SYNDROME [None]
  - HAEMODIALYSIS [None]
  - HEPATIC FAILURE [None]
  - COMPLETED SUICIDE [None]
  - ANION GAP INCREASED [None]
  - HYPOTENSION [None]
  - TACHYCARDIA [None]
  - RENAL FAILURE [None]
  - CARDIAC ARREST [None]
